FAERS Safety Report 13133750 (Version 1)
Quarter: 2017Q1

REPORT INFORMATION
  Report Type: Spontaneous
  Country: US (occurrence: US)
  Receive Date: 20170119
  Receipt Date: 20170119
  Transmission Date: 20170428
  Serious: Yes (Disabling)
  Sender: FDA-Public Use
  Company Number: None

PATIENT
  Age: 74 Year
  Sex: Male
  Weight: 79.38 kg

DRUGS (2)
  1. LUPRON [Suspect]
     Active Substance: LEUPROLIDE ACETATE
     Indication: PROSTATE CANCER
     Dosage: QUANITY - VENIPUNCTURE?FREQUENCY - 1 TIME 4 MO?ROUTE - INJECTION
     Dates: start: 20160601, end: 20160604
  2. MULTI VITAMINS WITH MINERALS [Concomitant]

REACTIONS (1)
  - Movement disorder [None]

NARRATIVE: CASE EVENT DATE: 20160601
